FAERS Safety Report 8021825-X (Version None)
Quarter: 2011Q4

REPORT INFORMATION
  Report Type: 
  Country: None (occurrence: None)
  Receive Date: 20111230
  Receipt Date: 20111216
  Transmission Date: 20120403
  Serious: Yes (Death, Congenital Anomaly)
  Sender: FDA-Public Use
  Company Number: 1000025996

PATIENT
  Sex: Female

DRUGS (7)
  1. FOSFOMYCIN (FOSFOMYCIN TROMETAMOL) (3 GRAM, GRANULATE) [Suspect]
     Dosage: (3 GM, ONCE), TRANSPLACENTAL
     Route: 064
     Dates: start: 20081221, end: 20081221
  2. KETOPROFEN [Suspect]
     Dosage: TRANSPLACENTAL
     Route: 064
     Dates: start: 20081210, end: 20081231
  3. PROPOFAN (CAFFEINE, CARBASALATE CALCIUM, CHLORPHENAMINE MALEATE, DEXTR [Suspect]
     Dosage: TRANSPLACENTAL
     Route: 064
     Dates: start: 20081210, end: 20081231
  4. EFFERALGAN CODEINE (CODEINE PHOSPHATE, PARACETAMOL) (TABLETS) [Suspect]
     Dosage: TRANSPLACENTAL
     Route: 064
     Dates: start: 20081210, end: 20081231
  5. PYOSTACINE (PRISTINAMYCIN) [Suspect]
     Dosage: TRANSPLACENTAL
     Route: 064
     Dates: start: 20081201, end: 20081210
  6. KLIPAL (CODEINE PHOSPHATE, PARACETAMOL) (500 MILLIGRAM, TABLETS) [Suspect]
     Dosage: TRANSPLACENTAL
     Route: 064
     Dates: start: 20081210, end: 20081231
  7. FUNGIZONE [Suspect]
     Dosage: TRANSPLACENTAL
     Route: 064
     Dates: start: 20081222

REACTIONS (3)
  - CONGENITAL CENTRAL NERVOUS SYSTEM ANOMALY [None]
  - MATERNAL DRUGS AFFECTING FOETUS [None]
  - ABORTION INDUCED [None]
